FAERS Safety Report 11281995 (Version 1)
Quarter: 2015Q3

REPORT INFORMATION
  Report Type: Report from Study
  Country: US (occurrence: US)
  Receive Date: 20150718
  Receipt Date: 20150718
  Transmission Date: 20151125
  Serious: Yes (Other)
  Sender: FDA-Public Use
  Company Number: PHEH2015US010383

PATIENT
  Sex: Female
  Weight: 79.37 kg

DRUGS (1)
  1. GILENYA [Suspect]
     Active Substance: FINGOLIMOD HYDROCHLORIDE
     Indication: MULTIPLE SCLEROSIS
     Dosage: 0.5 MG, QD
     Route: 048
     Dates: start: 20150303, end: 20150427

REACTIONS (5)
  - Malaise [Recovered/Resolved]
  - Nasopharyngitis [Unknown]
  - Upper respiratory tract infection [Recovered/Resolved]
  - Influenza [Unknown]
  - Rhinorrhoea [Recovered/Resolved]
